FAERS Safety Report 8938893 (Version 1)
Quarter: 2012Q4

REPORT INFORMATION
  Report Type: 
  Country: US (occurrence: US)
  Receive Date: 20121203
  Receipt Date: 20121203
  Transmission Date: 20130627
  Serious: No
  Sender: FDA-Public Use
  Company Number: US-PFIZER INC-2004087218

PATIENT
  Age: 87 Year
  Sex: Female

DRUGS (5)
  1. MOTRIN [Suspect]
     Indication: PAIN IN JAW
     Dosage: 200 mg, UNK
     Dates: start: 20040706
  2. MOTRIN [Suspect]
     Indication: NECK PAIN
  3. MOTRIN [Suspect]
     Indication: SHOULDER PAIN
  4. CLONAZEPAM [Concomitant]
     Dosage: UNK
  5. LEVOTHYROXINE SODIUM [Concomitant]
     Dosage: UNK

REACTIONS (1)
  - Swollen tongue [Unknown]
